FAERS Safety Report 24406972 (Version 1)
Quarter: 2024Q4

REPORT INFORMATION
  Report Type: Spontaneous
  Country: US (occurrence: None)
  Receive Date: 20241007
  Receipt Date: 20241007
  Transmission Date: 20250115
  Serious: Yes (Hospitalization, Other)
  Sender: UNICHEM
  Company Number: US-Unichem Pharmaceuticals (USA) Inc-UCM202410-001235

PATIENT
  Age: 59 Year
  Sex: Male

DRUGS (3)
  1. AMIODARONE HYDROCHLORIDE [Suspect]
     Active Substance: AMIODARONE HYDROCHLORIDE
     Indication: Arrhythmia
     Dosage: UNKNOWN
     Route: 065
  2. FLUOROURACIL\LEUCOVORIN CALCIUM\OXALIPLATIN [Suspect]
     Active Substance: FLUOROURACIL\LEUCOVORIN CALCIUM\OXALIPLATIN
     Indication: Colorectal cancer metastatic
     Dosage: COMPLETED 12 CYCLES
     Route: 065
  3. KEYTRUDA [Suspect]
     Active Substance: PEMBROLIZUMAB
     Indication: Colorectal cancer metastatic
     Dosage: UNKNOWN
     Route: 065

REACTIONS (8)
  - Respiratory failure [Unknown]
  - Pneumonia bacterial [Unknown]
  - Sepsis [Unknown]
  - Pneumonia [Unknown]
  - Staphylococcal bacteraemia [Unknown]
  - COVID-19 [Unknown]
  - Pulmonary ossification [Unknown]
  - Toxicity to various agents [Unknown]
